FAERS Safety Report 15316797 (Version 4)
Quarter: 2018Q3

REPORT INFORMATION
  Report Type: Spontaneous
  Country: US (occurrence: US)
  Receive Date: 20180824
  Receipt Date: 20180928
  Transmission Date: 20181010
  Serious: Yes (Hospitalization)
  Sender: FDA-Public Use
  Company Number: US-UNITED THERAPEUTICS-UNT-2018-011677

PATIENT
  Age: 39 Year
  Sex: Female

DRUGS (9)
  1. TYVASO [Suspect]
     Active Substance: TREPROSTINIL
     Indication: PULMONARY HYPERTENSION
     Dosage: 24 ?G, QID
  2. LETAIRIS [Suspect]
     Active Substance: AMBRISENTAN
     Indication: PULMONARY ARTERIAL HYPERTENSION
     Dosage: 5 MG, QD
     Route: 065
     Dates: start: 20170907
  3. UPTRAVI [Suspect]
     Active Substance: SELEXIPAG
     Dosage: 200 ?G, UNK
     Route: 065
  4. TYVASO [Suspect]
     Active Substance: TREPROSTINIL
     Indication: PULMONARY ARTERIAL HYPERTENSION
     Dosage: 18 ?G, QID
     Dates: start: 20180724, end: 20180830
  5. TYVASO [Suspect]
     Active Substance: TREPROSTINIL
     Dosage: 54 ?G, QID
  6. VELETRI [Concomitant]
     Active Substance: EPOPROSTENOL
     Dosage: 0.005 ?G/KG, CONTINUING
     Route: 041
     Dates: start: 2018
  7. TYVASO [Suspect]
     Active Substance: TREPROSTINIL
     Dosage: 36 ?G, QID
  8. UPTRAVI [Suspect]
     Active Substance: SELEXIPAG
     Indication: PULMONARY HYPERTENSION
     Dosage: 200 UG, BID
     Route: 065
     Dates: start: 20180525, end: 20180815
  9. VELETRI [Concomitant]
     Active Substance: EPOPROSTENOL
     Indication: PULMONARY HYPERTENSION
     Dosage: 10080 NG
     Route: 065
     Dates: start: 20180831

REACTIONS (11)
  - Dizziness [Unknown]
  - Dyspnoea [Not Recovered/Not Resolved]
  - Cough [Not Recovered/Not Resolved]
  - Weight fluctuation [Unknown]
  - Arthralgia [Recovered/Resolved]
  - Diarrhoea [Not Recovered/Not Resolved]
  - Throat irritation [Not Recovered/Not Resolved]
  - Heart rate increased [Unknown]
  - Chest pain [Unknown]
  - Peripheral swelling [Unknown]
  - Syncope [Unknown]

NARRATIVE: CASE EVENT DATE: 2018
